FAERS Safety Report 10170233 (Version 1)
Quarter: 2014Q2

REPORT INFORMATION
  Report Type: Spontaneous
  Country: AT (occurrence: AT)
  Receive Date: 20140513
  Receipt Date: 20140513
  Transmission Date: 20141212
  Serious: Yes (Other)
  Sender: FDA-Public Use
  Company Number: AT-ACTAVIS-2014-09958

PATIENT
  Age: 41 Year
  Sex: Female

DRUGS (4)
  1. QUETIAPINE (UNKNOWN) [Suspect]
     Indication: BIPOLAR II DISORDER
     Dosage: 25 MG, QHS, SINGLE DOSE
     Route: 065
  2. QUETIAPINE (UNKNOWN) [Suspect]
     Indication: DEPRESSION
  3. OXCARBAZEPINE [Concomitant]
     Indication: BIPOLAR II DISORDER
     Dosage: 300 MG, TID
     Route: 065
  4. TRAZODONE [Concomitant]
     Indication: DEPRESSION
     Dosage: 150 MG, QHS
     Route: 065

REACTIONS (1)
  - Restless legs syndrome [Recovered/Resolved]
